FAERS Safety Report 8182628-9 (Version None)
Quarter: 2012Q1

REPORT INFORMATION
  Report Type: 
  Country: None (occurrence: None)
  Receive Date: 20120301
  Receipt Date: 20120301
  Transmission Date: 20120608
  Serious: Yes (Life-Threatening)
  Sender: FDA-Public Use
  Company Number: None

PATIENT
  Age: 37 Year
  Sex: Male
  Weight: 83.9154 kg

DRUGS (1)
  1. OLANZAPINE [Suspect]
     Indication: DRUG THERAPY CHANGED
     Dosage: ONCE DAILY EVENING MOUTH
     Route: 048
     Dates: start: 20120101, end: 20120216

REACTIONS (3)
  - DYSPHAGIA [None]
  - PRODUCT SUBSTITUTION ISSUE [None]
  - HEADACHE [None]
